FAERS Safety Report 22626539 (Version 1)
Quarter: 2023Q2

REPORT INFORMATION
  Report Type: Spontaneous
  Country: FR (occurrence: None)
  Receive Date: 20230621
  Receipt Date: 20230621
  Transmission Date: 20230722
  Serious: Yes (Death)
  Sender: FDA-Public Use
  Company Number: 2023A141902

PATIENT
  Age: 32 Year
  Sex: Female

DRUGS (7)
  1. QUETIAPINE [Suspect]
     Active Substance: QUETIAPINE
     Route: 048
     Dates: end: 20220124
  2. AMOXAPINE [Suspect]
     Active Substance: AMOXAPINE
     Dates: end: 20220124
  3. TRAMADOL [Suspect]
     Active Substance: TRAMADOL
     Dates: end: 20220124
  4. LOXAPINE [Suspect]
     Active Substance: LOXAPINE
     Dates: end: 20220124
  5. ZOLPIDEM [Suspect]
     Active Substance: ZOLPIDEM TARTRATE
     Dates: end: 20220124
  6. DULOXETINE [Suspect]
     Active Substance: DULOXETINE
     Dates: end: 20220124
  7. OXYCODONE [Suspect]
     Active Substance: OXYCODONE
     Dates: end: 20220124

REACTIONS (2)
  - Drug abuse [Fatal]
  - Poisoning [Fatal]
